FAERS Safety Report 7557439-5 (Version None)
Quarter: 2011Q2

REPORT INFORMATION
  Report Type: 
  Country: None (occurrence: None)
  Receive Date: 20110620
  Receipt Date: 20110607
  Transmission Date: 20111010
  Serious: Yes (Hospitalization)
  Sender: FDA-Public Use
  Company Number: US-ROCHE-783390

PATIENT
  Sex: Female

DRUGS (5)
  1. PACLITAXEL [Suspect]
     Dosage: OVER 1 HR ON DAYS 1, 8 AND 15
     Route: 042
     Dates: start: 20100108
  2. GEMCITABINE [Suspect]
     Route: 065
  3. PACLITAXEL [Suspect]
     Route: 042
     Dates: start: 20100820
  4. BEVACIZUMAB [Suspect]
     Dosage: OVER 30-90 MIN ON DAYS 1 AND 15
     Route: 042
     Dates: start: 20100108
  5. CISPLATIN [Suspect]
     Route: 065

REACTIONS (4)
  - PNEUMONITIS [None]
  - MUSCULOSKELETAL CHEST PAIN [None]
  - HYPOXIA [None]
  - SINUS TACHYCARDIA [None]
